FAERS Safety Report 12383682 (Version 2)
Quarter: 2016Q2

REPORT INFORMATION
  Report Type: Spontaneous
  Country: DE (occurrence: DE)
  Receive Date: 20160519
  Receipt Date: 20160523
  Transmission Date: 20160815
  Serious: Yes (Other)
  Sender: FDA-Public Use
  Company Number: PHHY2016DE065542

PATIENT
  Sex: Female

DRUGS (1)
  1. NILOTINIB [Suspect]
     Active Substance: NILOTINIB
     Indication: SYSTEMIC MASTOCYTOSIS
     Dosage: 3 DF, TID
     Route: 048

REACTIONS (5)
  - Intraocular melanoma [Unknown]
  - Rash [Unknown]
  - Visual impairment [Unknown]
  - Photophobia [Unknown]
  - Product use issue [Unknown]
